FAERS Safety Report 18970400 (Version 1)
Quarter: 2021Q1

REPORT INFORMATION
  Report Type: Report from Study
  Country: US (occurrence: US)
  Receive Date: 20210304
  Receipt Date: 20210304
  Transmission Date: 20210420
  Serious: Yes (Hospitalization)
  Sender: FDA-Public Use
  Company Number: US-PFIZER INC-2021187763

PATIENT
  Age: 11 Year
  Sex: Female
  Weight: 64.5 kg

DRUGS (12)
  1. ENALAPRIL [Concomitant]
     Active Substance: ENALAPRIL
     Indication: BLOOD PRESSURE MANAGEMENT
     Dosage: 2.5 MG, 2X/DAY
     Route: 048
     Dates: start: 20201001
  2. ENOXAPARIN [Concomitant]
     Active Substance: ENOXAPARIN
     Indication: INTRACARDIAC THROMBUS
     Dosage: 60 MG, Q 12 HR
     Route: 042
     Dates: start: 20210114
  3. LIDOCAINE/PRILOCAINE [Concomitant]
     Active Substance: LIDOCAINE\PRILOCAINE
     Indication: PAIN PROPHYLAXIS
     Dosage: 2.5 %, AS NEEDED
     Route: 061
     Dates: start: 20191231
  4. ONDANSETRON [Concomitant]
     Active Substance: ONDANSETRON
     Indication: PROPHYLAXIS OF NAUSEA AND VOMITING
     Dosage: 8 MG, AS NEEDED
     Route: 048
     Dates: start: 20191231
  5. PALBOCICLIB [Suspect]
     Active Substance: PALBOCICLIB
     Indication: UNDIFFERENTIATED SARCOMA
     Dosage: 125 MG, ONCE DAILY (DAYS 1?14 OF 21 DAY CYCLE)
     Route: 048
     Dates: start: 20210118
  6. TOPOTECAN [Suspect]
     Active Substance: TOPOTECAN HYDROCHLORIDE
     Indication: UNDIFFERENTIATED SARCOMA
     Dosage: 1.2 MG, ONCE DAILY (DAYS 1?5 OF 21 DAY CYCLE)
     Route: 041
     Dates: start: 20210118
  7. CYCLOPHOSPHAMIDE. [Suspect]
     Active Substance: CYCLOPHOSPHAMIDE
     Indication: UNDIFFERENTIATED SARCOMA
     Dosage: 410 MG, ONCE DAILY (DAYS 1?5 OF 21 DAY CYCLE)
     Route: 041
     Dates: start: 20210118
  8. ACETAMINOPHEN;HYDROCODONE [Concomitant]
     Active Substance: ACETAMINOPHEN\HYDROCODONE
     Indication: TUMOUR PAIN
     Dosage: 5 MG, AS NEEDED
     Route: 048
     Dates: start: 20200629
  9. LORAZEPAM. [Concomitant]
     Active Substance: LORAZEPAM
     Indication: NAUSEA
     Dosage: 0.5 MG, AS NEEDED
     Route: 048
     Dates: start: 20191231
  10. TRIMETHOPRIM SULFAMETHOXAZOLE [Concomitant]
     Active Substance: SULFAMETHOXAZOLE\TRIMETHOPRIM
     Indication: PROPHYLAXIS
     Dosage: 160 MG, ONCE
     Route: 048
     Dates: start: 20191231
  11. ONDANSETRON [Concomitant]
     Active Substance: ONDANSETRON
     Indication: PROPHYLAXIS OF NAUSEA AND VOMITING
  12. SPIRONOLACTONE. [Concomitant]
     Active Substance: SPIRONOLACTONE
     Indication: BLOOD PRESSURE MANAGEMENT
     Dosage: 25 MG, 2X/DAY
     Route: 048
     Dates: start: 20201005

REACTIONS (2)
  - Infection [Not Recovered/Not Resolved]
  - Hypotension [Not Recovered/Not Resolved]

NARRATIVE: CASE EVENT DATE: 20210218
